FAERS Safety Report 5425203-9 (Version None)
Quarter: 2007Q3

REPORT INFORMATION
  Report Type: 
  Country: None (occurrence: None)
  Receive Date: 20070824
  Receipt Date: 20070815
  Transmission Date: 20080115
  Serious: Yes (Other)
  Sender: FDA-Public Use
  Company Number: B0483668A

PATIENT
  Sex: Female

DRUGS (3)
  1. NIQUITIN CQ CLEAR 21MG [Suspect]
     Dosage: 1PAT PER DAY
     Route: 062
     Dates: start: 20070805, end: 20070807
  2. LISINOPRIL [Concomitant]
  3. BENDROFLUMETHIAZIDE [Concomitant]

REACTIONS (14)
  - BACK PAIN [None]
  - DIZZINESS [None]
  - FEELING ABNORMAL [None]
  - HYPERHIDROSIS [None]
  - INSOMNIA [None]
  - MALAISE [None]
  - MUSCLE SPASMS [None]
  - MYALGIA [None]
  - PAIN [None]
  - PARAESTHESIA ORAL [None]
  - PLEURITIC PAIN [None]
  - PRESYNCOPE [None]
  - SWELLING FACE [None]
  - SYNCOPE [None]
